FAERS Safety Report 6520277-6 (Version None)
Quarter: 2009Q4

REPORT INFORMATION
  Report Type: 
  Country: None (occurrence: None)
  Receive Date: 20091229
  Receipt Date: 20091218
  Transmission Date: 20100525
  Serious: Yes (Other)
  Sender: FDA-Public Use
  Company Number: US-NOVOPROD-300218

PATIENT
  Sex: Male
  Weight: 53.061 kg

DRUGS (2)
  1. NORDITROPIN NORDIFLEX [Suspect]
     Indication: GROWTH HORMONE DEFICIENCY
     Dosage: 2.5 MG, UNK
     Route: 058
     Dates: start: 20080501
  2. GENOTROPIN [Concomitant]

REACTIONS (1)
  - SYRINGOMYELIA [None]
